FAERS Safety Report 5916830-0 (Version None)
Quarter: 2008Q4

REPORT INFORMATION
  Report Type: 
  Country: None (occurrence: None)
  Receive Date: 20081013
  Receipt Date: 20081002
  Transmission Date: 20090506
  Serious: Yes (Hospitalization)
  Sender: FDA-Public Use
  Company Number: IT-PFIZER INC-2008080238

PATIENT
  Sex: Male
  Weight: 78 kg

DRUGS (2)
  1. SU-011,248 [Suspect]
     Indication: RENAL CANCER METASTATIC
     Route: 048
     Dates: start: 20060721
  2. BISOPROLOL [Concomitant]
     Route: 048
     Dates: start: 20060701, end: 20080816

REACTIONS (1)
  - BRADYCARDIA [None]
